FAERS Safety Report 7337928-9 (Version None)
Quarter: 2011Q1

REPORT INFORMATION
  Report Type: 
  Country: None (occurrence: None)
  Receive Date: 20110224
  Receipt Date: 20110209
  Transmission Date: 20110831
  Serious: Yes (Other)
  Sender: FDA-Public Use
  Company Number: 2011SP000528

PATIENT
  Age: 75 Year
  Sex: Female

DRUGS (5)
  1. THYROID [Concomitant]
  2. ALVESCO [Suspect]
     Indication: ASTHMA
     Dosage: QD; INHALATION
     Route: 055
     Dates: start: 20091031
  3. ADVAIR DISKUS 100/50 [Suspect]
     Indication: ASTHMA
     Dosage: QD; INHALATION
     Route: 055
     Dates: start: 20090924
  4. METFORMIN [Concomitant]
  5. LISINOPRIL [Concomitant]

REACTIONS (3)
  - ASTHMA [None]
  - PRODUCT QUALITY ISSUE [None]
  - DRUG INEFFECTIVE [None]
